FAERS Safety Report 18310113 (Version 1)
Quarter: 2020Q3

REPORT INFORMATION
  Report Type: Spontaneous
  Country: US (occurrence: US)
  Receive Date: 20200924
  Receipt Date: 20200924
  Transmission Date: 20201103
  Serious: No
  Sender: FDA-Public Use
  Company Number: US-BIOMARINAP-US-2020-132385

PATIENT
  Sex: Female

DRUGS (2)
  1. DEPO?MEDROL [Concomitant]
     Active Substance: METHYLPREDNISOLONE ACETATE
     Indication: PRODUCT USED FOR UNKNOWN INDICATION
     Dosage: UNK
  2. PALYNZIQ [Suspect]
     Active Substance: PEGVALIASE-PQPZ
     Indication: PHENYLKETONURIA
     Dosage: 2. MILLIGRAM
     Route: 058
     Dates: start: 20200903

REACTIONS (4)
  - Injection site pain [Unknown]
  - Injection site erythema [Unknown]
  - Injection site oedema [Unknown]
  - Injection site reaction [Unknown]
